FAERS Safety Report 7342661-3 (Version None)
Quarter: 2011Q1

REPORT INFORMATION
  Report Type: 
  Country: None (occurrence: None)
  Receive Date: 20110310
  Receipt Date: 20100913
  Transmission Date: 20110831
  Serious: Yes (Hospitalization, Other)
  Sender: FDA-Public Use
  Company Number: US-BAYER-200928603NA

PATIENT
  Sex: Female
  Weight: 80.726 kg

DRUGS (53)
  1. AUGMENTIN '125' [Concomitant]
     Dosage: UNK
     Dates: start: 20070101
  2. FLONASE [Concomitant]
     Dosage: UNK
     Dates: start: 20070101
  3. ALBUTEROL [Concomitant]
     Indication: ASTHMA
     Dosage: UNK
     Dates: start: 20080101
  4. TOPAMAX [Concomitant]
     Indication: MOOD ALTERED
  5. CARAFATE [Concomitant]
  6. FOLIC ACID [Concomitant]
     Dosage: 1 MG, UNK
     Route: 048
     Dates: start: 20050101
  7. LODINE XL [Concomitant]
     Dosage: UNK
     Dates: start: 20050101
  8. ZYRTEC [Concomitant]
     Dosage: UNK
     Dates: start: 20080101
  9. ZONEGRAN [Concomitant]
     Dosage: 100 MG, UNK
     Dates: start: 20100101
  10. CEFZIL [Concomitant]
     Dosage: UNK
     Dates: start: 20100101
  11. TRAMADOL [Concomitant]
     Indication: ARTHRALGIA
     Dosage: UNK
     Dates: start: 20050101
  12. UNCODEABLE ^UNCLASSIFIABLE^ [Concomitant]
     Dosage: UNK UNK, QD
  13. LEXAPRO [Concomitant]
     Dosage: 10 MG, QD
     Route: 048
     Dates: start: 20050101
  14. PREDNISONE TAB [Concomitant]
     Dosage: 7.5 MG, QD
     Route: 048
     Dates: start: 20050101
  15. NEXIUM [Concomitant]
     Indication: GASTROOESOPHAGEAL REFLUX DISEASE
     Dosage: UNK
     Dates: start: 20080101
  16. MUCINEX [Concomitant]
     Dosage: UNK
     Dates: start: 20090101
  17. PHENAZOPYRIDINE HCL TAB [Concomitant]
     Dosage: UNK
     Dates: start: 20100101
  18. LORAZEPAM [Concomitant]
     Indication: ANXIETY
  19. LAMICTAL [Concomitant]
     Dosage: 200 MG, QD
     Route: 048
     Dates: start: 20060101, end: 20100101
  20. HUMIRA [Concomitant]
     Dosage: UNK, Q2WK
     Dates: start: 20100101
  21. EXCEDRIN (MIGRAINE) [Concomitant]
     Dosage: UNK
     Dates: start: 20070101
  22. CEFTIN [Concomitant]
     Dosage: UNK
     Dates: start: 20070101
  23. AZITHROMYCIN [Concomitant]
     Dosage: UNK
     Dates: start: 20070101
  24. TIZANIDINE [Concomitant]
     Dosage: UNK
     Dates: start: 20080101
  25. ISONIAZID [Concomitant]
     Dosage: UNK
     Dates: start: 20080101
  26. CIPRO [Concomitant]
     Dosage: UNK
     Dates: start: 20100101
  27. LORAZEPAM [Concomitant]
     Indication: MOOD ALTERED
  28. DEPO-PROVERA [Concomitant]
     Dosage: UNK UNK, Q3MON
     Dates: start: 20050101
  29. TOPAMAX [Concomitant]
     Dosage: 100 MG, QD
     Route: 048
     Dates: start: 20060101, end: 20100101
  30. HUMIRA [Concomitant]
     Indication: RHEUMATOID ARTHRITIS
     Dosage: UNK UNK, Q2WK
     Dates: start: 20080101
  31. OMEPRAZOLE [Concomitant]
     Dosage: UNK
     Dates: start: 20080101
  32. ISONIAZID [Concomitant]
     Indication: TUBERCULIN TEST POSITIVE
     Dosage: 300 MG, QD
  33. ZONISAMIDE [Concomitant]
     Indication: ARTHRALGIA
     Dosage: UNK
     Dates: start: 20050101
  34. LORAZEPAM [Concomitant]
     Indication: ATTENTION DEFICIT/HYPERACTIVITY DISORDER
  35. ENBREL [Concomitant]
     Dosage: 50 MG, UNK
     Route: 058
     Dates: start: 20050101
  36. METHOTREXATE [Concomitant]
     Indication: RHEUMATOID ARTHRITIS
     Dosage: 2.5 MG, QD
     Route: 048
     Dates: start: 20010101
  37. CALCIUM [Concomitant]
     Dosage: UNK
     Dates: start: 20050101
  38. PLAQUENIL [Concomitant]
     Dosage: UNK
     Dates: start: 20070101
  39. TOPAMAX [Concomitant]
     Indication: ATTENTION DEFICIT/HYPERACTIVITY DISORDER
  40. PREVACID [Concomitant]
     Dosage: 30 MG, BID
  41. CEFUROXIME AXETIL [Concomitant]
  42. YAZ [Suspect]
     Indication: ORAL CONTRACEPTION
     Dosage: UNK
     Dates: start: 20070905
  43. CYMBALTA [Concomitant]
     Dosage: 60 MG, UNK
     Dates: start: 20050101
  44. ULTRAM [Concomitant]
     Dosage: 50 MG, TID
     Dates: start: 20060101
  45. NORTREL 7/7/7 [Concomitant]
     Dosage: UNK
     Dates: start: 20060101
  46. CONCERTA [Concomitant]
     Dosage: UNK
     Dates: start: 20070101
  47. PRENATAL VITAMINS [Concomitant]
     Dosage: UNK
     Dates: start: 20070101
  48. TOPROL-XL [Concomitant]
     Dosage: UNK
     Dates: start: 20080101
  49. DOXYCYCLINE [Concomitant]
     Dosage: UNK
     Dates: start: 20080101
  50. FLAGYL [Concomitant]
     Dosage: 500 MG, TID
     Route: 048
     Dates: start: 20100811
  51. TOPAMAX [Concomitant]
     Indication: ANXIETY
     Dosage: UNK
     Dates: start: 20080801
  52. CALCIUM +VIT D [Concomitant]
     Indication: RHEUMATOID ARTHRITIS
     Dosage: UNK
     Dates: start: 20080101
  53. MELOXICAM [Concomitant]

REACTIONS (14)
  - CHOLECYSTITIS CHRONIC [None]
  - CHOLESTEROSIS [None]
  - VOMITING [None]
  - ABDOMINAL DISCOMFORT [None]
  - HYPOKALAEMIA [None]
  - FAECES DISCOLOURED [None]
  - NAUSEA [None]
  - ABDOMINAL PAIN UPPER [None]
  - WEIGHT DECREASED [None]
  - DIARRHOEA [None]
  - BILIARY DYSKINESIA [None]
  - ABDOMINAL PAIN [None]
  - DEEP VEIN THROMBOSIS [None]
  - PAIN IN EXTREMITY [None]
